FAERS Safety Report 6725352-9 (Version None)
Quarter: 2010Q2

REPORT INFORMATION
  Report Type: 
  Country: None (occurrence: None)
  Receive Date: 20100514
  Receipt Date: 20100505
  Transmission Date: 20101027
  Serious: Yes (Life-Threatening, Hospitalization)
  Sender: FDA-Public Use
  Company Number: FR-BRISTOL-MYERS SQUIBB COMPANY-15101918

PATIENT
  Age: 66 Year
  Sex: Male

DRUGS (13)
  1. GLUCOPHAGE [Suspect]
     Indication: TYPE 2 DIABETES MELLITUS
     Route: 048
  2. CARDENSIEL [Suspect]
     Indication: CORONARY ARTERY DISEASE
     Dosage: 1DF=2.5 MG TABLET
     Route: 048
  3. DIAMICRON [Suspect]
     Indication: TYPE 2 DIABETES MELLITUS
     Route: 048
     Dates: end: 20100314
  4. PRAXILENE [Concomitant]
     Dosage: PRAXILENE 200MG
     Route: 048
  5. PRAVASTATIN SODIUM [Concomitant]
     Dosage: 1 DF
     Route: 048
  6. FONZYLANE [Concomitant]
     Dosage: 150MG TAB
     Route: 048
  7. COTAREG [Concomitant]
     Dosage: COTAREG 160MG TAB
  8. PLAVIX [Concomitant]
     Dosage: PLAVIX 75MG TAB
     Route: 048
  9. CONTRAMAL [Concomitant]
     Dosage: CONTRAMAL 50MG
     Route: 048
  10. CYMBALTA [Concomitant]
     Dosage: 30 MG, CAPSULE
     Route: 048
  11. DOLIPRANE [Concomitant]
     Dosage: TAB
     Route: 048
  12. ALPRAZOLAM [Concomitant]
     Dosage: TAB
     Route: 048
  13. MOGADON [Concomitant]
     Dosage: TAB
     Route: 048

REACTIONS (2)
  - HEMIPLEGIA [None]
  - HYPOGLYCAEMIC COMA [None]
